FAERS Safety Report 24185731 (Version 2)
Quarter: 2024Q3

REPORT INFORMATION
  Report Type: Spontaneous
  Country: US (occurrence: US)
  Receive Date: 20240807
  Receipt Date: 20240909
  Transmission Date: 20241016
  Serious: Yes (Hospitalization, Other)
  Sender: SANOFI AVENTIS
  Company Number: US-SA-SAC20240715001186

PATIENT
  Age: 9 Month
  Sex: Male

DRUGS (2)
  1. CEREZYME [Suspect]
     Active Substance: IMIGLUCERASE
     Indication: Gaucher^s disease
     Dosage: 400 U, QW
     Route: 042
     Dates: start: 20240626, end: 2024
  2. CEREZYME [Suspect]
     Active Substance: IMIGLUCERASE
     Dosage: 400 U, QW
     Route: 042
     Dates: start: 2024, end: 20240823

REACTIONS (4)
  - Pneumonia bacterial [Unknown]
  - Aspiration [Unknown]
  - Lung disorder [Unknown]
  - Respiration abnormal [Unknown]

NARRATIVE: CASE EVENT DATE: 20240701
